FAERS Safety Report 20493183 (Version 1)
Quarter: 2022Q1

REPORT INFORMATION
  Report Type: Spontaneous
  Country: IS (occurrence: IS)
  Receive Date: 20220220
  Receipt Date: 20220220
  Transmission Date: 20220423
  Serious: Yes (Hospitalization)
  Sender: FDA-Public Use
  Company Number: None

PATIENT
  Sex: Female

DRUGS (2)
  1. OXALIPLATIN [Suspect]
     Active Substance: OXALIPLATIN
     Indication: Rectal cancer
     Dosage: 220 MG IV; OXALIPLATIN ACTAVIS 5 MG/ML INNRENNSLIS YKKNI, LAUSN
     Dates: start: 20220104
  2. CAPECITABINE [Suspect]
     Active Substance: CAPECITABINE
     Indication: Rectal cancer
     Dosage: TAKE 3 TABS 2X PER DAY FOR 14 DAYS WITH MEALS, THEN REST FOR 7 DAYS; ECANSYA 500 MG FILM-COATED TABL
     Dates: start: 20220104

REACTIONS (3)
  - Pain [Recovering/Resolving]
  - Infarction [Recovering/Resolving]
  - Delirium [Recovering/Resolving]

NARRATIVE: CASE EVENT DATE: 20220111
